FAERS Safety Report 5748343-3 (Version None)
Quarter: 2008Q2

REPORT INFORMATION
  Report Type: 
  Country: None (occurrence: None)
  Receive Date: 20080523
  Receipt Date: 20080512
  Transmission Date: 20081010
  Serious: Yes (Hospitalization, Other)
  Sender: FDA-Public Use
  Company Number: US-PFIZER INC-2008028437

PATIENT
  Sex: Female

DRUGS (12)
  1. LYRICA [Suspect]
     Indication: PAIN
  2. ATENOLOL [Concomitant]
  3. CYMBALTA [Concomitant]
  4. SYNTHROID [Concomitant]
  5. TENIDAP SODIUM [Concomitant]
  6. PRILOSEC [Concomitant]
  7. HYDRALAZINE HCL [Concomitant]
  8. PLAVIX [Concomitant]
  9. POTASSIUM CHLORIDE [Concomitant]
  10. TOPAMAX [Concomitant]
  11. ZONISAMIDE [Concomitant]
  12. ALPRAZOLAM [Concomitant]

REACTIONS (4)
  - FLUID RETENTION [None]
  - RENAL INJURY [None]
  - SKIN DISCOLOURATION [None]
  - SWELLING [None]
